FAERS Safety Report 17686499 (Version 2)
Quarter: 2025Q2

REPORT INFORMATION
  Report Type: Report from Study
  Country: RO (occurrence: RO)
  Receive Date: 20200420
  Receipt Date: 20250621
  Transmission Date: 20250716
  Serious: Yes (Hospitalization, Disabling, Other)
  Sender: AUROBINDO
  Company Number: RO-ABBVIE-20K-135-3341850-00

PATIENT
  Age: 27 Year
  Sex: Female

DRUGS (9)
  1. DARUNAVIR [Suspect]
     Active Substance: DARUNAVIR
     Indication: HIV infection
     Route: 065
  2. LAMIVUDINE AND ZIDOVUDINE [Suspect]
     Active Substance: LAMIVUDINE\ZIDOVUDINE
     Indication: HIV infection
     Route: 065
  3. RALTEGRAVIR [Suspect]
     Active Substance: RALTEGRAVIR
     Indication: HIV infection
     Route: 065
  4. NORVIR [Suspect]
     Active Substance: RITONAVIR
     Indication: HIV infection
     Route: 065
  5. ZIDOVUDINE [Suspect]
     Active Substance: ZIDOVUDINE
     Indication: HIV infection
     Route: 065
  6. ZIAGEN [Suspect]
     Active Substance: ABACAVIR SULFATE
     Indication: HIV infection
     Route: 065
  7. KALETRA [Suspect]
     Active Substance: LOPINAVIR\RITONAVIR
     Indication: HIV infection
     Route: 065
  8. LAMIVUDINE [Suspect]
     Active Substance: LAMIVUDINE
     Indication: HIV infection
     Route: 065
  9. LOPINAVIR [Suspect]
     Active Substance: LOPINAVIR
     Indication: HIV infection
     Route: 065

REACTIONS (27)
  - Posture abnormal [Recovered/Resolved]
  - Gait disturbance [Recovered/Resolved]
  - Balance disorder [Recovered/Resolved]
  - Treatment noncompliance [Unknown]
  - Diplopia [Recovered/Resolved]
  - Aqueductal stenosis [Recovered/Resolved]
  - Cerebral atrophy [Recovered/Resolved]
  - Incontinence [Recovered/Resolved]
  - JC virus infection [Recovered/Resolved]
  - CD4 lymphocytes decreased [Recovered/Resolved]
  - Hydrocephalus [Recovered/Resolved]
  - Developmental coordination disorder [Recovered/Resolved]
  - Hemiparesis [Recovered/Resolved]
  - Central nervous system lesion [Recovered/Resolved]
  - Ataxia [Recovered/Resolved]
  - Progressive multifocal leukoencephalopathy [Recovered/Resolved]
  - Speech disorder [Recovering/Resolving]
  - Behaviour disorder [Unknown]
  - Dysarthria [Recovered/Resolved]
  - Somnolence [Recovered/Resolved]
  - Blood HIV RNA increased [Unknown]
  - Pleocytosis [Recovered/Resolved]
  - Hemiataxia [Recovered/Resolved]
  - Bedridden [Recovered/Resolved]
  - Hemihypoaesthesia [Recovered/Resolved]
  - Coordination abnormal [Recovering/Resolving]
  - Therapy non-responder [Recovered/Resolved]
